FAERS Safety Report 23059903 (Version 3)
Quarter: 2024Q1

REPORT INFORMATION
  Report Type: Report from Study
  Country: US (occurrence: US)
  Receive Date: 20231012
  Receipt Date: 20240215
  Transmission Date: 20240409
  Serious: Yes (Hospitalization)
  Sender: FDA-Public Use
  Company Number: US-BoehringerIngelheim-2023-BI-253981

PATIENT
  Age: 86 Year
  Sex: Female

DRUGS (2)
  1. OFEV [Suspect]
     Active Substance: NINTEDANIB
     Indication: Idiopathic pulmonary fibrosis
     Route: 048
     Dates: start: 20201130
  2. OFEV [Suspect]
     Active Substance: NINTEDANIB
     Dosage: WITH FOOD
     Route: 048

REACTIONS (13)
  - Fall [Unknown]
  - Cerebral haemorrhage [Unknown]
  - COVID-19 [Unknown]
  - Cerebrovascular accident [Unknown]
  - Intracranial aneurysm [Unknown]
  - Aortic aneurysm [Unknown]
  - Cough [Unknown]
  - Diarrhoea [Unknown]
  - Hypertension [Unknown]
  - Vomiting [Not Recovered/Not Resolved]
  - Abdominal distension [Unknown]
  - Nausea [Not Recovered/Not Resolved]
  - Retching [Unknown]

NARRATIVE: CASE EVENT DATE: 20230926
